FAERS Safety Report 12453189 (Version 1)
Quarter: 2016Q2

REPORT INFORMATION
  Report Type: Spontaneous
  Country: US (occurrence: US)
  Receive Date: 20160609
  Receipt Date: 20160609
  Transmission Date: 20160815
  Serious: No
  Sender: FDA-Public Use
  Company Number: US-BAYER-2016-111998

PATIENT
  Age: 81 Year
  Sex: Female
  Weight: 79.37 kg

DRUGS (1)
  1. ALEVE PM [Suspect]
     Active Substance: DIPHENHYDRAMINE HYDROCHLORIDE\NAPROXEN SODIUM
     Indication: BACK PAIN
     Dosage: 1 DF, QD
     Route: 048

REACTIONS (4)
  - Sleep disorder [None]
  - Drug ineffective [None]
  - Drug effect delayed [None]
  - Product use issue [None]
